FAERS Safety Report 25101683 (Version 2)
Quarter: 2025Q1

REPORT INFORMATION
  Report Type: Spontaneous
  Country: US (occurrence: US)
  Receive Date: 20250320
  Receipt Date: 20250331
  Transmission Date: 20250409
  Serious: No
  Sender: BIOMARIN
  Company Number: US-SANOFI-02440340

PATIENT

DRUGS (2)
  1. ALDURAZYME [Suspect]
     Active Substance: LARONIDASE
     Indication: Product used for unknown indication
     Dosage: 43.5 MG/KG, QW
     Route: 042
     Dates: start: 1993
  2. ALDURAZYME [Suspect]
     Active Substance: LARONIDASE
     Dosage: 43.5 MG/KG, QOW
     Route: 042
     Dates: start: 20250204

REACTIONS (1)
  - Inappropriate schedule of product administration [Unknown]

NARRATIVE: CASE EVENT DATE: 20250204
